FAERS Safety Report 8251381-2 (Version None)
Quarter: 2012Q2

REPORT INFORMATION
  Report Type: 
  Country: None (occurrence: None)
  Receive Date: 20120402
  Receipt Date: 20120327
  Transmission Date: 20120825
  Serious: Yes (Other)
  Sender: FDA-Public Use
  Company Number: US-PFIZER INC-2011101052

PATIENT
  Sex: Female
  Weight: 72.562 kg

DRUGS (3)
  1. LYRICA [Suspect]
     Indication: FATIGUE
     Dosage: 300 MG, 2X/DAY
     Route: 048
     Dates: end: 20120101
  2. LYRICA [Suspect]
     Indication: FIBROMYALGIA
     Dosage: 300 MG AM AND 450 MG PM
  3. LYRICA [Suspect]
     Dosage: 300 MG, 2X/DAY
     Route: 048
     Dates: start: 20120101

REACTIONS (9)
  - WITHDRAWAL SYNDROME [None]
  - FEELING ABNORMAL [None]
  - VOMITING [None]
  - POOR QUALITY DRUG ADMINISTERED [None]
  - INSOMNIA [None]
  - DIARRHOEA [None]
  - WEIGHT DECREASED [None]
  - HYPERHIDROSIS [None]
  - HOT FLUSH [None]
